FAERS Safety Report 6204132-7 (Version None)
Quarter: 2009Q2

REPORT INFORMATION
  Report Type: 
  Country: None (occurrence: None)
  Receive Date: 20090526
  Receipt Date: 20090526
  Transmission Date: 20091009
  Serious: Yes (Disabling, Other)
  Sender: FDA-Public Use
  Company Number: None

PATIENT
  Age: 47 Year
  Sex: Female
  Weight: 55.3388 kg

DRUGS (2)
  1. XOPENEX [Suspect]
  2. PROAIR HFA [Suspect]

REACTIONS (1)
  - DRUG INEFFECTIVE [None]
